FAERS Safety Report 16218944 (Version 1)
Quarter: 2019Q2

REPORT INFORMATION
  Report Type: Spontaneous
  Country: US (occurrence: US)
  Receive Date: 20190419
  Receipt Date: 20190419
  Transmission Date: 20190711
  Serious: No
  Sender: FDA-Public Use
  Company Number: US-PFIZER INC-2019169075

PATIENT
  Age: 79 Year
  Sex: Male
  Weight: 97.7 kg

DRUGS (1)
  1. TOVIAZ [Suspect]
     Active Substance: FESOTERODINE FUMARATE
     Indication: URINARY INCONTINENCE
     Dosage: 8 MG, 2X/DAY(2 TABLETS TWICE DAILY BY MOUTH )
     Route: 048
     Dates: start: 201902

REACTIONS (2)
  - Product use issue [Unknown]
  - Therapeutic product effect delayed [Recovered/Resolved]
